FAERS Safety Report 10654261 (Version 1)
Quarter: 2014Q4

REPORT INFORMATION
  Report Type: Spontaneous
  Country: US (occurrence: US)
  Receive Date: 20141216
  Receipt Date: 20141216
  Transmission Date: 20150529
  Serious: No
  Sender: FDA-Public Use
  Company Number: US-BAUSCH-SYM-2013-13124

PATIENT
  Sex: Female

DRUGS (1)
  1. ZIANA [Suspect]
     Active Substance: CLINDAMYCIN PHOSPHATE\TRETINOIN
     Indication: SKIN WRINKLING
     Route: 061

REACTIONS (2)
  - Skin wrinkling [Not Recovered/Not Resolved]
  - Condition aggravated [Not Recovered/Not Resolved]
